FAERS Safety Report 9644919 (Version 1)
Quarter: 2013Q4

REPORT INFORMATION
  Report Type: Spontaneous
  Country: US (occurrence: None)
  Receive Date: 20131023
  Receipt Date: 20131023
  Transmission Date: 20140711
  Serious: Yes (Other)
  Sender: FDA-Public Use
  Company Number: None

PATIENT
  Age: 17 Year
  Sex: Female
  Weight: 93.44 kg

DRUGS (1)
  1. ALBUTEROL SULFATE 2.5 MG NEPHRON [Suspect]
     Indication: ASTHMA
     Dosage: 1 VIAL EVERY 4 HOURS AS NEEDED TAKEN BY MOUTH
     Route: 048
     Dates: end: 20131022

REACTIONS (3)
  - Asthma [None]
  - Drug ineffective [None]
  - Poor quality drug administered [None]
